FAERS Safety Report 19381405 (Version 1)
Quarter: 2021Q2

REPORT INFORMATION
  Report Type: Spontaneous
  Country: US (occurrence: US)
  Receive Date: 20210604
  Receipt Date: 20210604
  Transmission Date: 20210717
  Serious: Yes (Hospitalization)
  Sender: FDA-Public Use
  Company Number: None

PATIENT
  Age: 59 Year
  Sex: Female

DRUGS (22)
  1. ENULOSE [Concomitant]
     Active Substance: LACTULOSE
  2. FAMOTIDINE. [Concomitant]
     Active Substance: FAMOTIDINE
  3. IBUPROFEN. [Concomitant]
     Active Substance: IBUPROFEN
  4. OMEPRAZOLE. [Concomitant]
     Active Substance: OMEPRAZOLE
  5. LOSARTAN. [Concomitant]
     Active Substance: LOSARTAN
  6. CALCIUM [Concomitant]
     Active Substance: CALCIUM
  7. GABAPENTIN. [Concomitant]
     Active Substance: GABAPENTIN
  8. BUPROPION. [Concomitant]
     Active Substance: BUPROPION
  9. LORATIDINE [Concomitant]
     Active Substance: LORATADINE
  10. SUCRALFATE. [Concomitant]
     Active Substance: SUCRALFATE
  11. ALBUTEROL. [Concomitant]
     Active Substance: ALBUTEROL
  12. VITAMIN B12 [Concomitant]
     Active Substance: CYANOCOBALAMIN
  13. DILTIAZEM. [Concomitant]
     Active Substance: DILTIAZEM
  14. METHYLPREDNISOLONE. [Concomitant]
     Active Substance: METHYLPREDNISOLONE
  15. LAMOTRIGINE. [Concomitant]
     Active Substance: LAMOTRIGINE
  16. LAMICTAL [Concomitant]
     Active Substance: LAMOTRIGINE
  17. ATORVASTATIN [Concomitant]
     Active Substance: ATORVASTATIN
  18. ORENCIA [Suspect]
     Active Substance: ABATACEPT
     Indication: RHEUMATOID ARTHRITIS
     Route: 058
     Dates: start: 20140319
  19. CARISOPRODOL. [Concomitant]
     Active Substance: CARISOPRODOL
  20. PROAIR HFA [Concomitant]
     Active Substance: ALBUTEROL SULFATE
  21. TIZANIDINE. [Concomitant]
     Active Substance: TIZANIDINE
  22. DICYCLOMINE [Concomitant]
     Active Substance: DICYCLOMINE HYDROCHLORIDE

REACTIONS (2)
  - Therapy interrupted [None]
  - Surgery [None]
